FAERS Safety Report 24420461 (Version 1)
Quarter: 2024Q4

REPORT INFORMATION
  Report Type: Spontaneous
  Country: BR (occurrence: BR)
  Receive Date: 20241010
  Receipt Date: 20241010
  Transmission Date: 20250115
  Serious: Yes (Life-Threatening, Hospitalization, Other)
  Sender: NOVO NORDISK
  Company Number: BR-NOVOPROD-1295685

PATIENT
  Sex: Male

DRUGS (2)
  1. RYBELSUS [Suspect]
     Active Substance: SEMAGLUTIDE
     Indication: Overweight
  2. RYBELSUS [Suspect]
     Active Substance: SEMAGLUTIDE
     Indication: Diabetes mellitus
     Dosage: 14 MG, QOD ON AN EMPTY STOMACH
     Dates: start: 20240923, end: 202409

REACTIONS (10)
  - Dizziness [Unknown]
  - Blood creatinine increased [Not Recovered/Not Resolved]
  - Dehydration [Unknown]
  - White blood cell count increased [Unknown]
  - Pancreatitis [Unknown]
  - Vomiting [Not Recovered/Not Resolved]
  - Blood glucose increased [Unknown]
  - Malaise [Not Recovered/Not Resolved]
  - Diarrhoea [Not Recovered/Not Resolved]
  - Off label use [Recovered/Resolved]

NARRATIVE: CASE EVENT DATE: 20240101
